FAERS Safety Report 7413788-2 (Version None)
Quarter: 2011Q2

REPORT INFORMATION
  Report Type: 
  Country: None (occurrence: None)
  Receive Date: 20110413
  Receipt Date: 20110404
  Transmission Date: 20111010
  Serious: Yes (Other)
  Sender: FDA-Public Use
  Company Number: US-AMGEN-USASP2011017821

PATIENT
  Age: 39 Year
  Sex: Female

DRUGS (2)
  1. METHOTREXATE [Concomitant]
     Dosage: 1 MG, QWK
     Dates: start: 20110101
  2. ENBREL [Suspect]
     Indication: ANKYLOSING SPONDYLITIS
     Dosage: 50 MG, QWK
     Dates: start: 20101001

REACTIONS (6)
  - INFLUENZA LIKE ILLNESS [None]
  - ANKYLOSING SPONDYLITIS [None]
  - MEMORY IMPAIRMENT [None]
  - EXOSTOSIS [None]
  - DRUG EFFECT DECREASED [None]
  - SINUSITIS [None]
